APPROVED DRUG PRODUCT: RIMANTADINE HYDROCHLORIDE
Active Ingredient: RIMANTADINE HYDROCHLORIDE
Strength: 100MG
Dosage Form/Route: TABLET;ORAL
Application: A076375 | Product #001
Applicant: CHARTWELL RX SCIENCES LLC
Approved: Jan 14, 2003 | RLD: No | RS: No | Type: DISCN